FAERS Safety Report 23459857 (Version 3)
Quarter: 2024Q1

REPORT INFORMATION
  Report Type: Report from Study
  Country: CA (occurrence: CA)
  Receive Date: 20240131
  Receipt Date: 20240301
  Transmission Date: 20240410
  Serious: Yes (Hospitalization)
  Sender: FDA-Public Use
  Company Number: CA-CELLTRION INC.-2024CA002320

PATIENT

DRUGS (3)
  1. TRUXIMA [Suspect]
     Active Substance: RITUXIMAB-ABBS
     Indication: Vasculitis
     Dosage: 500 MG DAY 1 AND 15
     Route: 042
     Dates: start: 20240110
  2. TRUXIMA [Suspect]
     Active Substance: RITUXIMAB-ABBS
     Dosage: INF#2
     Route: 042
     Dates: start: 20240110
  3. TRUXIMA [Suspect]
     Active Substance: RITUXIMAB-ABBS
     Dosage: TODAY, INFUSING DAY 15 TUXIMA 1000MG IV
     Route: 042
     Dates: start: 20240222

REACTIONS (4)
  - Dumping syndrome [Recovering/Resolving]
  - Poor venous access [Unknown]
  - Sleep disorder [Unknown]
  - Fatigue [Not Recovered/Not Resolved]

NARRATIVE: CASE EVENT DATE: 20240101
